FAERS Safety Report 21654679 (Version 1)
Quarter: 2022Q4

REPORT INFORMATION
  Report Type: Spontaneous
  Country: US (occurrence: US)
  Receive Date: 20221129
  Receipt Date: 20221129
  Transmission Date: 20230113
  Serious: Yes (Other)
  Sender: FDA-Public Use
  Company Number: US-LA JOLLA PHARMACEUTICAL COMPANY-0000384

PATIENT

DRUGS (1)
  1. GIAPREZA [Suspect]
     Active Substance: ANGIOTENSIN II
     Indication: Septic shock
     Dosage: UNK

REACTIONS (2)
  - Embolism [Unknown]
  - Pulmonary embolism [Unknown]
